FAERS Safety Report 24920364 (Version 1)
Quarter: 2025Q1

REPORT INFORMATION
  Report Type: Report from Study
  Country: US (occurrence: US)
  Receive Date: 20250204
  Receipt Date: 20250204
  Transmission Date: 20250409
  Serious: No
  Sender: EXELIXIS
  Company Number: US-EXELIXIS-CABO-24073786

PATIENT
  Sex: Male
  Weight: 89.782 kg

DRUGS (2)
  1. COMETRIQ [Suspect]
     Active Substance: CABOZANTINIB S-MALATE
     Indication: Thyroid cancer
  2. CAPRELSA [Suspect]
     Active Substance: VANDETANIB
     Indication: Thyroid cancer
     Dosage: 300 MG, QD
     Dates: start: 20240210

REACTIONS (5)
  - Blister [Recovered/Resolved]
  - Diarrhoea [Recovering/Resolving]
  - Asthenia [Recovered/Resolved]
  - Skin disorder [Recovered/Resolved]
  - Pain [Recovered/Resolved]
